FAERS Safety Report 6969685-X (Version None)
Quarter: 2010Q3

REPORT INFORMATION
  Report Type: 
  Country: None (occurrence: None)
  Receive Date: 20100908
  Receipt Date: 20100903
  Transmission Date: 20110219
  Serious: Yes (Other)
  Sender: FDA-Public Use
  Company Number: US-BAYER-201031969NA

PATIENT
  Sex: Female

DRUGS (1)
  1. YAZ [Suspect]
     Indication: PRODUCT USED FOR UNKNOWN INDICATION
     Route: 048
     Dates: start: 20100101

REACTIONS (13)
  - AFFECT LABILITY [None]
  - BACK PAIN [None]
  - GAIT DISTURBANCE [None]
  - HEART RATE INCREASED [None]
  - HYPOAESTHESIA [None]
  - LIBIDO DECREASED [None]
  - MUSCLE DISORDER [None]
  - MUSCLE SPASMS [None]
  - MYOCARDIAL INFARCTION [None]
  - PAIN IN EXTREMITY [None]
  - PELVIC PAIN [None]
  - RESPIRATORY RATE INCREASED [None]
  - THROMBOSIS [None]
